FAERS Safety Report 8091547-8 (Version None)
Quarter: 2012Q1

REPORT INFORMATION
  Report Type: 
  Country: None (occurrence: None)
  Receive Date: 20120129
  Receipt Date: 20110908
  Transmission Date: 20120608
  Serious: Yes (Other)
  Sender: FDA-Public Use
  Company Number: US-ABBOTT-11P-163-0853702-00

PATIENT
  Age: 25 Year
  Sex: Male

DRUGS (7)
  1. CALCIUM [Concomitant]
     Indication: MINERAL SUPPLEMENTATION
  2. HUMIRA [Suspect]
     Indication: CROHN'S DISEASE
     Dates: start: 20101105
  3. ENTOCORT EC [Concomitant]
     Indication: PRODUCT USED FOR UNKNOWN INDICATION
     Dosage: 3 TABLETS DAILY
     Route: 048
  4. MERCAPTOPURINE [Concomitant]
     Indication: PRODUCT USED FOR UNKNOWN INDICATION
     Dosage: 3 TABLETS DAILY
  5. MULTI-VITAMIN [Concomitant]
     Indication: PRODUCT USED FOR UNKNOWN INDICATION
  6. PENTASA [Concomitant]
     Indication: PRODUCT USED FOR UNKNOWN INDICATION
     Dosage: 3 TABLETS DAILY
     Route: 048
  7. FISH OIL [Concomitant]
     Indication: PRODUCT USED FOR UNKNOWN INDICATION

REACTIONS (1)
  - HAND FRACTURE [None]
